FAERS Safety Report 6653801-3 (Version None)
Quarter: 2010Q1

REPORT INFORMATION
  Report Type: 
  Country: None (occurrence: None)
  Receive Date: 20100326
  Receipt Date: 20100319
  Transmission Date: 20100710
  Serious: Yes (Hospitalization)
  Sender: FDA-Public Use
  Company Number: A0851863A

PATIENT
  Sex: Female

DRUGS (6)
  1. ADVAIR DISKUS 100/50 [Suspect]
     Indication: ASTHMA
     Route: 055
     Dates: start: 20030101
  2. FLOVENT [Suspect]
     Indication: ASTHMA
     Route: 055
  3. ALLEGRA [Concomitant]
  4. NEBULIZER [Concomitant]
  5. PROVENTIL [Concomitant]
  6. ASMANEX TWISTHALER [Concomitant]

REACTIONS (7)
  - ADVERSE DRUG REACTION [None]
  - BLOOD PRESSURE DECREASED [None]
  - DEPRESSED LEVEL OF CONSCIOUSNESS [None]
  - DRUG INTOLERANCE [None]
  - DRUG PRESCRIBING ERROR [None]
  - FEELING ABNORMAL [None]
  - LOSS OF CONSCIOUSNESS [None]
